FAERS Safety Report 8911867 (Version 1)
Quarter: 2012Q4

REPORT INFORMATION
  Report Type: 
  Country: US (occurrence: US)
  Receive Date: 20121116
  Receipt Date: 20121116
  Transmission Date: 20130627
  Serious: No
  Sender: FDA-Public Use
  Company Number: US-JNJFOC-20121016008

PATIENT
  Sex: Female

DRUGS (5)
  1. INVEGA SUSTENNA [Suspect]
     Indication: SCHIZOPHRENIA
     Dosage: Three week after 4th dose, received 5th dose (maintenance)
     Route: 030
  2. INVEGA SUSTENNA [Suspect]
     Indication: SCHIZOPHRENIA
     Dosage: Two week after 3rd dose, received 4th dose (maintenance)
     Route: 030
  3. INVEGA SUSTENNA [Suspect]
     Indication: SCHIZOPHRENIA
     Dosage: One week after 2nd dose, received 3rd dose (maintenance)
     Route: 030
  4. INVEGA SUSTENNA [Suspect]
     Indication: SCHIZOPHRENIA
     Route: 030
     Dates: start: 201208
  5. INVEGA SUSTENNA [Suspect]
     Indication: SCHIZOPHRENIA
     Dosage: after 10-15 days of 1st dose, received 2nd dose after
     Route: 030
     Dates: start: 201208

REACTIONS (3)
  - Hallucination, auditory [Unknown]
  - Inappropriate schedule of drug administration [Not Recovered/Not Resolved]
  - Nausea [Recovered/Resolved]
